FAERS Safety Report 6646706-5 (Version None)
Quarter: 2010Q1

REPORT INFORMATION
  Report Type: 
  Country: None (occurrence: None)
  Receive Date: 20100323
  Receipt Date: 20100316
  Transmission Date: 20100710
  Serious: Yes (Hospitalization)
  Sender: FDA-Public Use
  Company Number: SE-ROCHE-674130

PATIENT

DRUGS (6)
  1. BEVACIZUMAB [Suspect]
     Dosage: DOSE CAPTURED AS PER PROTOCOL
     Route: 042
  2. CAPECITABINE [Suspect]
     Dosage: LAST DOSE TAKEN ON 18 NOVEMBER 2009.
     Route: 065
     Dates: start: 20090805
  3. CAPECITABINE [Suspect]
     Dosage: TREATMENT DELAYED TEMPORARY
     Route: 065
     Dates: start: 20091209
  4. CAPECITABINE [Suspect]
     Route: 065
     Dates: start: 20091209, end: 20100212
  5. IRINOTECAN HCL [Suspect]
     Dosage: LAST DOSE TAKEN ON 18 NOVEMBER 2009.
     Route: 065
     Dates: start: 20090805
  6. IRINOTECAN HCL [Suspect]
     Dosage: STUDY MEDICATION DELAYED
     Route: 065
     Dates: start: 20091209

REACTIONS (3)
  - COLONIC OBSTRUCTION [None]
  - CONSTIPATION [None]
  - LARGE INTESTINE PERFORATION [None]
